FAERS Safety Report 10254250 (Version 2)
Quarter: 2015Q4

REPORT INFORMATION
  Report Type: Spontaneous
  Country: US (occurrence: US)
  Receive Date: 20140624
  Receipt Date: 20151029
  Transmission Date: 20160304
  Serious: Yes (Death)
  Sender: FDA-Public Use
  Company Number: US-ROCHE-1423061

PATIENT
  Age: 49 Year
  Sex: Female
  Weight: 43.58 kg

DRUGS (1)
  1. HERCEPTIN [Suspect]
     Active Substance: TRASTUZUMAB
     Indication: BREAST CANCER
     Route: 042
     Dates: start: 20140121

REACTIONS (1)
  - Death [Fatal]

NARRATIVE: CASE EVENT DATE: 20140609
